FAERS Safety Report 4628347-4 (Version None)
Quarter: 2005Q2

REPORT INFORMATION
  Report Type: 
  Country: None (occurrence: None)
  Receive Date: 20050401
  Receipt Date: 20050323
  Transmission Date: 20051028
  Serious: Yes (Hospitalization, Other)
  Sender: FDA-Public Use
  Company Number: 230920K05USA

PATIENT
  Age: 63 Year
  Sex: Female

DRUGS (3)
  1. REBIF [Suspect]
     Indication: MULTIPLE SCLEROSIS
     Dosage: 44 MCG, 3 IN 1 WEEKS, SUBCUTANEOUS
     Route: 058
     Dates: start: 20030508, end: 20050201
  2. REBIF [Suspect]
     Indication: MULTIPLE SCLEROSIS
     Dosage: 44 MCG, 3 IN 1 WEEKS, SUBCUTANEOUS
     Route: 058
     Dates: start: 20050309
  3. PREDNISONE [Concomitant]

REACTIONS (12)
  - ABDOMINAL PAIN UPPER [None]
  - BLOOD CHOLESTEROL INCREASED [None]
  - BLOOD GLUCOSE DECREASED [None]
  - CARDIAC DISORDER [None]
  - CORONARY ARTERY DISEASE [None]
  - DIABETES MELLITUS [None]
  - DIZZINESS [None]
  - HYPERTENSION [None]
  - MYOCARDIAL INFARCTION [None]
  - NAUSEA [None]
  - QUADRUPLE VESSEL BYPASS GRAFT [None]
  - TREMOR [None]
